FAERS Safety Report 12000878 (Version 2)
Quarter: 2016Q1

REPORT INFORMATION
  Report Type: Spontaneous
  Country: US (occurrence: US)
  Receive Date: 20160204
  Receipt Date: 20160205
  Transmission Date: 20160526
  Serious: Yes (Other)
  Sender: FDA-Public Use
  Company Number: US-TEVA-630737USA

PATIENT
  Sex: Male

DRUGS (1)
  1. DIAZEPAM. [Suspect]
     Active Substance: DIAZEPAM
     Indication: ANXIETY
     Dosage: 5 MILLIGRAM DAILY;
     Route: 048
     Dates: start: 201507

REACTIONS (11)
  - Loss of consciousness [Unknown]
  - Blindness [Unknown]
  - Anxiety [Unknown]
  - Product physical issue [Unknown]
  - Asthenia [Unknown]
  - Confusional state [Unknown]
  - Pain [Unknown]
  - Product tampering [Unknown]
  - Headache [Unknown]
  - Depression [Unknown]
  - Muscle spasms [Unknown]

NARRATIVE: CASE EVENT DATE: 2016
